FAERS Safety Report 16047645 (Version 1)
Quarter: 2019Q1

REPORT INFORMATION
  Report Type: Spontaneous
  Country: FR (occurrence: FR)
  Receive Date: 20190307
  Receipt Date: 20190307
  Transmission Date: 20190418
  Serious: Yes (Other)
  Sender: FDA-Public Use
  Company Number: FR-AMGEN-FRASP2019033683

PATIENT
  Sex: Male
  Weight: 77 kg

DRUGS (1)
  1. MIMPARA [Suspect]
     Active Substance: CINACALCET HYDROCHLORIDE
     Indication: HYPERPARATHYROIDISM
     Dosage: 90 MG, QD
     Route: 065

REACTIONS (3)
  - Ileectomy [Unknown]
  - Drug effect decreased [Unknown]
  - Dialysis [Unknown]

NARRATIVE: CASE EVENT DATE: 20181124
